FAERS Safety Report 7474693-9 (Version None)
Quarter: 2011Q2

REPORT INFORMATION
  Report Type: 
  Country: None (occurrence: None)
  Receive Date: 20110512
  Receipt Date: 20110502
  Transmission Date: 20111010
  Serious: Yes (Life-Threatening, Hospitalization)
  Sender: FDA-Public Use
  Company Number: FR-CELGENEUS-056-21880-11032490

PATIENT
  Sex: Male

DRUGS (6)
  1. REVLIMID [Suspect]
     Indication: MULTIPLE MYELOMA
     Dosage: 10 MILLIGRAM
     Route: 048
     Dates: start: 20100921, end: 20110103
  2. CLASTOBAN [Concomitant]
     Dosage: 800 MILLIGRAM
     Route: 048
  3. MEDROL [Suspect]
     Dosage: .1429 DOSAGE FORMS
     Route: 048
     Dates: start: 20100921
  4. ARANESP [Suspect]
     Dosage: 21.4286 MICROGRAM
     Route: 058
     Dates: start: 20101215
  5. ACETAMINOPHEN W/ PROPOXYPHENE HCL [Concomitant]
     Route: 048
  6. ASPEGIC 325 [Concomitant]
     Dosage: 100 MILLIGRAM
     Route: 048

REACTIONS (1)
  - ACUTE CORONARY SYNDROME [None]
